FAERS Safety Report 14069716 (Version 1)
Quarter: 2017Q4

REPORT INFORMATION
  Report Type: Spontaneous
  Country: US (occurrence: US)
  Receive Date: 20171010
  Receipt Date: 20171010
  Transmission Date: 20180321
  Serious: No
  Sender: FDA-Public Use
  Company Number: PHEH2017US032137

PATIENT
  Sex: Female

DRUGS (1)
  1. TASIGNA [Suspect]
     Active Substance: NILOTINIB
     Indication: PRODUCT USED FOR UNKNOWN INDICATION
     Dosage: UNK UNK, BID (EVERY 12 HOURS)
     Route: 048

REACTIONS (4)
  - Anaemia [Unknown]
  - Fatigue [Unknown]
  - White blood cell count decreased [Unknown]
  - Platelet count abnormal [Recovered/Resolved]
